FAERS Safety Report 21245357 (Version 1)
Quarter: 2022Q3

REPORT INFORMATION
  Report Type: Spontaneous
  Country: US (occurrence: US)
  Receive Date: 20220823
  Receipt Date: 20220823
  Transmission Date: 20221027
  Serious: Yes (Hospitalization, Other)
  Sender: FDA-Public Use
  Company Number: US-LOTUS-2022-LOTUS-049380

PATIENT
  Age: 62 Year
  Sex: Male

DRUGS (1)
  1. METHOTREXATE [Suspect]
     Active Substance: METHOTREXATE
     Indication: Psoriatic arthropathy

REACTIONS (9)
  - Leukoerythroblastosis [Unknown]
  - Diarrhoea [Unknown]
  - Clostridium difficile colitis [Unknown]
  - Stomatitis [Unknown]
  - Toxicity to various agents [Unknown]
  - Acute kidney injury [Recovered/Resolved]
  - Weight decreased [Unknown]
  - Haematochezia [Unknown]
  - Myelosuppression [Recovered/Resolved]
